FAERS Safety Report 9835481 (Version 1)
Quarter: 2014Q1

REPORT INFORMATION
  Report Type: Spontaneous
  Country: US (occurrence: US)
  Receive Date: 20140122
  Receipt Date: 20140122
  Transmission Date: 20141002
  Serious: No
  Sender: FDA-Public Use
  Company Number: US-BRISTOL-MYERS SQUIBB COMPANY-19680404

PATIENT
  Age: 59 Year
  Sex: Female
  Weight: 87.98 kg

DRUGS (8)
  1. ELIQUIS [Suspect]
     Indication: HAEMORRHAGE
     Dates: start: 20130927
  2. ARMOUR THYROID [Concomitant]
  3. PROGESTERONE [Concomitant]
  4. TOPROL XL [Concomitant]
  5. METFORMIN [Concomitant]
  6. DIAZEPAM [Concomitant]
     Indication: ANXIETY
  7. HYDROCODONE [Concomitant]
     Dosage: 1 DF = 7.5/500 UNITS NOS
  8. CYCLOBENZAPRINE [Concomitant]

REACTIONS (1)
  - Dizziness [Unknown]
